FAERS Safety Report 25016319 (Version 1)
Quarter: 2025Q1

REPORT INFORMATION
  Report Type: Spontaneous
  Country: GE (occurrence: GE)
  Receive Date: 20250227
  Receipt Date: 20250227
  Transmission Date: 20250409
  Serious: Yes (Other)
  Sender: ROCHE
  Company Number: GE-ROCHE-10000211476

PATIENT

DRUGS (1)
  1. HERCEPTIN [Suspect]
     Active Substance: TRASTUZUMAB
     Indication: Breast cancer stage III
     Route: 065

REACTIONS (3)
  - Pain [Unknown]
  - Insomnia [Unknown]
  - Metastatic neoplasm [Unknown]
